FAERS Safety Report 9314562 (Version 1)
Quarter: 2013Q2

REPORT INFORMATION
  Report Type: Spontaneous
  Country: GB (occurrence: None)
  Receive Date: 20130524
  Receipt Date: 20130524
  Transmission Date: 20140414
  Serious: Yes (Other)
  Sender: FDA-Public Use
  Company Number: SYM-2013-03931

PATIENT
  Age: 27 Year
  Sex: Male

DRUGS (3)
  1. METRONIDAZOLE [Suspect]
     Indication: ANTIBIOTIC PROPHYLAXIS
     Route: 048
     Dates: start: 20130420, end: 20130422
  2. AMOXICILLIN [Concomitant]
  3. IBUPROFEN [Concomitant]

REACTIONS (3)
  - Convulsion [None]
  - Postictal state [None]
  - Tongue biting [None]
